FAERS Safety Report 5372444-5 (Version None)
Quarter: 2007Q2

REPORT INFORMATION
  Report Type: 
  Country: None (occurrence: None)
  Receive Date: 20070627
  Receipt Date: 20060815
  Transmission Date: 20071010
  Serious: Yes (Other)
  Sender: FDA-Public Use
  Company Number: PHEH2006US07066

PATIENT
  Age: 39 Year
  Sex: Female
  Weight: 63.5 kg

DRUGS (3)
  1. GLEEVEC [Suspect]
     Indication: CHRONIC MYELOID LEUKAEMIA
     Dosage: 400 MG, QD
     Route: 048
     Dates: start: 20010101
  2. COMPAZINE [Concomitant]
     Indication: NAUSEA
     Dosage: 10 MG, PRN
     Route: 048
  3. MOTRIN [Concomitant]
     Indication: ARTHRALGIA
     Dosage: 400 MG, UNK
     Route: 048

REACTIONS (8)
  - COMPARTMENT SYNDROME [None]
  - DEEP VEIN THROMBOSIS [None]
  - DYSPNOEA [None]
  - FASCIOTOMY [None]
  - NON-CARDIAC CHEST PAIN [None]
  - PAIN IN EXTREMITY [None]
  - PALPITATIONS [None]
  - PULMONARY EMBOLISM [None]
